FAERS Safety Report 9521959 (Version 1)
Quarter: 2013Q3

REPORT INFORMATION
  Report Type: Report from Study
  Country: US (occurrence: US)
  Receive Date: 20130913
  Receipt Date: 20130913
  Transmission Date: 20140515
  Serious: Yes (Other)
  Sender: FDA-Public Use
  Company Number: US-ABBOTT-13P-163-1144453-00

PATIENT
  Age: 35 Year
  Sex: Male

DRUGS (9)
  1. HUMIRA [Suspect]
     Indication: CROHN^S DISEASE
  2. HUMIRA [Suspect]
  3. UNKNOWN MEDICATION [Concomitant]
     Indication: CROHN^S DISEASE
     Dosage: 2, ONCE DAILY
  4. LOMOTIL [Concomitant]
     Indication: DIARRHOEA
     Dosage: 2 DAILY
  5. CRESTOR [Concomitant]
     Indication: BLOOD CHOLESTEROL INCREASED
     Dosage: 1 DAILY
  6. MULTIVITAMINS [Concomitant]
     Indication: PRODUCT USED FOR UNKNOWN INDICATION
     Dosage: 1 DAILY
  7. B12 [Concomitant]
     Indication: PRODUCT USED FOR UNKNOWN INDICATION
  8. APIDRA [Concomitant]
     Indication: DIABETES MELLITUS
     Dosage: ON A SLIDING SCALE BEFORE MEALS
  9. LANTUS SOLOSTAR PEN [Concomitant]
     Indication: DIABETES MELLITUS
     Dosage: AT NOON

REACTIONS (5)
  - Unevaluable event [Unknown]
  - Abnormal faeces [Unknown]
  - Flatulence [Unknown]
  - Clostridium difficile infection [Unknown]
  - Drug effect incomplete [Unknown]
